FAERS Safety Report 14433416 (Version 1)
Quarter: 2018Q1

REPORT INFORMATION
  Report Type: Spontaneous
  Country: US (occurrence: US)
  Receive Date: 20180124
  Receipt Date: 20180124
  Transmission Date: 20180509
  Serious: No
  Sender: FDA-Public Use
  Company Number: US-PCCINC-2017-PEL-003169

PATIENT

DRUGS (15)
  1. BACLOFEN. [Concomitant]
     Active Substance: BACLOFEN
     Dosage: UNK, PRN
     Route: 048
  2. GABLOFEN [Suspect]
     Active Substance: BACLOFEN
     Dosage: 190 ?G, QD
     Route: 037
     Dates: start: 20170816
  3. GABLOFEN [Suspect]
     Active Substance: BACLOFEN
     Dosage: 823.5 ?G, QD
     Route: 037
  4. GABLOFEN [Suspect]
     Active Substance: BACLOFEN
     Dosage: 250 ?G, QD
     Route: 037
  5. GABLOFEN [Suspect]
     Active Substance: BACLOFEN
     Indication: MUSCLE SPASTICITY
     Dosage: 200 ?G, QD
     Route: 037
  6. GABLOFEN [Suspect]
     Active Substance: BACLOFEN
     Dosage: 529 ?G, UNK
     Route: 037
     Dates: start: 20170711
  7. GABLOFEN [Suspect]
     Active Substance: BACLOFEN
     Dosage: 400 ?G, QD
     Route: 037
     Dates: start: 20170822
  8. WELLBUTRIN [Concomitant]
     Active Substance: BUPROPION HYDROCHLORIDE
     Dosage: UNK
     Route: 065
  9. ZANAFLEX [Concomitant]
     Active Substance: TIZANIDINE HYDROCHLORIDE
     Dosage: UNK
     Route: 065
  10. GABLOFEN [Suspect]
     Active Substance: BACLOFEN
     Dosage: 200 ?G, QD
     Route: 037
  11. LEXAPRO [Concomitant]
     Active Substance: ESCITALOPRAM OXALATE
     Dosage: UNK
     Route: 065
  12. VOLTAREN [Concomitant]
     Active Substance: DICLOFENAC SODIUM
     Dosage: UNK
     Route: 065
  13. GABLOFEN [Suspect]
     Active Substance: BACLOFEN
     Dosage: 50 ?G, UNK
     Route: 037
     Dates: start: 20170711
  14. GABLOFEN [Suspect]
     Active Substance: BACLOFEN
     Dosage: 500 ?G, QD
     Route: 037
     Dates: start: 20170711
  15. ATIVAN [Concomitant]
     Active Substance: LORAZEPAM
     Dosage: UNK
     Route: 065

REACTIONS (5)
  - Device kink [Recovered/Resolved]
  - Therapy non-responder [Recovered/Resolved]
  - Hypertonia [Unknown]
  - Musculoskeletal stiffness [Unknown]
  - Muscle spasticity [Recovered/Resolved]

NARRATIVE: CASE EVENT DATE: 201704
